FAERS Safety Report 9395973 (Version 1)
Quarter: 2013Q3

REPORT INFORMATION
  Report Type: Spontaneous
  Country: US (occurrence: US)
  Receive Date: 20130711
  Receipt Date: 20130711
  Transmission Date: 20140515
  Serious: Yes (Hospitalization, Other)
  Sender: FDA-Public Use
  Company Number: US-PFIZER INC-2013202515

PATIENT
  Age: 44 Year
  Sex: Female

DRUGS (2)
  1. CHANTIX [Suspect]
     Dosage: STARTING MONTH PACK AND 1MG CONTINUING MONTH PACK
     Dates: start: 20100205, end: 20100812
  2. AMITRIPTYLINE [Concomitant]
     Dosage: 25 MG, UNK
     Dates: start: 20100701

REACTIONS (1)
  - Convulsion [Unknown]
